FAERS Safety Report 23141316 (Version 1)
Quarter: 2023Q4

REPORT INFORMATION
  Report Type: Spontaneous
  Country: US (occurrence: US)
  Receive Date: 20231103
  Receipt Date: 20231103
  Transmission Date: 20240109
  Serious: No
  Sender: FDA-Public Use
  Company Number: US-OPELLA-2023OHG010818

PATIENT
  Sex: Female

DRUGS (1)
  1. GOLD BOND INTENSIVE HEALING ANTI ITCH SKIN PROTECTANT [Suspect]
     Active Substance: DIMETHICONE\PRAMOXINE HYDROCHLORIDE
     Dosage: STRENGTH-0.5%+1%
     Route: 065

REACTIONS (3)
  - Expired product administered [Unknown]
  - Product quality issue [Unknown]
  - No adverse event [Unknown]
